FAERS Safety Report 18656005 (Version 1)
Quarter: 2020Q4

REPORT INFORMATION
  Report Type: Spontaneous
  Country: US (occurrence: US)
  Receive Date: 20201223
  Receipt Date: 20201223
  Transmission Date: 20210114
  Serious: No
  Sender: FDA-Public Use
  Company Number: US-COOPERSURGICAL, INC.-US-2020CPS000088

PATIENT
  Sex: Female
  Weight: 97.51 kg

DRUGS (1)
  1. PARAGARD T 380A [Suspect]
     Active Substance: COPPER
     Indication: CONTRACEPTION
     Dosage: UNK
     Route: 015
     Dates: start: 20191120, end: 201912

REACTIONS (5)
  - Device expulsion [Recovered/Resolved]
  - Metrorrhagia [Unknown]
  - Complication associated with device [Recovered/Resolved]
  - Pelvic pain [Unknown]
  - Menorrhagia [Unknown]
